FAERS Safety Report 15938202 (Version 1)
Quarter: 2019Q1

REPORT INFORMATION
  Report Type: Spontaneous
  Country: FR (occurrence: FR)
  Receive Date: 20190208
  Receipt Date: 20190208
  Transmission Date: 20190417
  Serious: Yes (Hospitalization)
  Sender: FDA-Public Use
  Company Number: 2014-0033-SPO(0) LOG NO. ST20131090

PATIENT
  Age: 47 Year
  Sex: Female

DRUGS (11)
  1. ANDROCUR (ALONE 1/2 TABLET PER DAY) [Suspect]
     Active Substance: CYPROTERONE ACETATE
     Dates: start: 198709, end: 198709
  2. ETHINYLESTRADIOL (DRUG USE FOR UNKNOWN INDICATION) [Concomitant]
     Active Substance: ETHINYL ESTRADIOL
     Route: 065
     Dates: start: 198701, end: 198708
  3. PERINDOPRIL [Concomitant]
     Active Substance: PERINDOPRIL
     Route: 048
     Dates: start: 2011
  4. STEDIRIL [ETHINYL ESTRADIOL\LEVONORGESTREL] [Suspect]
     Active Substance: ETHINYL ESTRADIOL\LEVONORGESTREL
     Dates: start: 198404, end: 198404
  5. ESTROGEL [Suspect]
     Active Substance: ESTRADIOL
     Indication: PRODUCT USED FOR UNKNOWN INDICATION
     Route: 003
     Dates: start: 199209, end: 2013
  6. ANDROCUR (INCREASE DOSE TO 1/2 TABLET) (STILL WITHOUT INTERRUPTION + O [Suspect]
     Active Substance: CYPROTERONE ACETATE
     Dates: start: 1997, end: 20130810
  7. OESTROGEL [Suspect]
     Active Substance: ESTRADIOL
     Dates: start: 199209, end: 199209
  8. ANDROCUR (ALONE WITHOUT INTERRUPTION) [Suspect]
     Active Substance: CYPROTERONE ACETATE
     Dates: start: 198810, end: 198810
  9. MINIDRIL (ESTHINYLESTRADIOL, DRUG USE FOR UNKNOWN INDICATION) [Suspect]
     Active Substance: ETHINYL ESTRADIOL\LEVONORGESTREL
     Route: 048
     Dates: start: 198609, end: 198610
  10. ANDROCUR [Suspect]
     Active Substance: CYPROTERONE ACETATE
     Route: 048
     Dates: start: 198701, end: 198708
  11. CLOMIFENE [Concomitant]
     Active Substance: CLOMIPHENE
     Route: 065

REACTIONS (2)
  - Meningioma [Not Recovered/Not Resolved]
  - Treatment noncompliance [Recovered/Resolved]
